FAERS Safety Report 4906203-1 (Version None)
Quarter: 2006Q1

REPORT INFORMATION
  Report Type: 
  Country: None (occurrence: None)
  Receive Date: 20060207
  Receipt Date: 20060123
  Transmission Date: 20060701
  Serious: Yes (Hospitalization)
  Sender: FDA-Public Use
  Company Number: 2006RR-01535

PATIENT
  Age: 75 Year
  Sex: Male

DRUGS (3)
  1. METFORMIN HCL [Suspect]
     Indication: DIABETES MELLITUS
     Dosage: 1000 MG, BID, ORAL
     Route: 048
  2. FENOFIBRATE [Suspect]
     Indication: HYPERTRIGLYCERIDAEMIA
     Dosage: 200 MG, QD, ORAL
     Route: 048
  3. ROSIGLITAZONE [Suspect]
     Indication: HYPERGLYCAEMIA
     Dosage: 2 MG, BID, ORAL
     Route: 048

REACTIONS (11)
  - CARDIOMYOPATHY [None]
  - CHRONIC OBSTRUCTIVE PULMONARY DISEASE [None]
  - DRUG INTERACTION [None]
  - HYPOTHYROIDISM [None]
  - METABOLIC DISORDER [None]
  - MUSCLE SPASMS [None]
  - MYOPATHY [None]
  - PAIN [None]
  - PERIPHERAL SENSORY NEUROPATHY [None]
  - PERIPHERAL VASCULAR DISORDER [None]
  - RENAL IMPAIRMENT [None]
